FAERS Safety Report 13619880 (Version 7)
Quarter: 2019Q1

REPORT INFORMATION
  Report Type: Report from Study
  Country: JP (occurrence: JP)
  Receive Date: 20170606
  Receipt Date: 20190222
  Transmission Date: 20190417
  Serious: Yes (Hospitalization, Other)
  Sender: FDA-Public Use
  Company Number: JP-AMGEN-JPNCT2016178234

PATIENT
  Age: 73 Year
  Sex: Male
  Weight: 56 kg

DRUGS (38)
  1. PANITUMUMAB [Suspect]
     Active Substance: PANITUMUMAB
     Dosage: 260 MG, Q2WK
     Route: 041
     Dates: start: 20170106, end: 20170210
  2. CALCIUM LEVOFOLINATE [Suspect]
     Active Substance: LEVOLEUCOVORIN CALCIUM
     Indication: RECTAL CANCER
     Dosage: 325 MG, Q2WK
     Route: 041
     Dates: start: 20160916, end: 20160916
  3. BACILLUS MESENTERICUS W/CLOSTRIDIUM [Concomitant]
     Indication: DIARRHOEA
     Dosage: 2 DF, TID
     Route: 048
     Dates: start: 20140728
  4. TAKECAB [Concomitant]
     Active Substance: VONOPRAZAN FUMURATE
     Indication: GASTROOESOPHAGEAL REFLUX DISEASE
     Dosage: 20 MG, QD
     Route: 048
     Dates: start: 20160916
  5. PANITUMUMAB [Suspect]
     Active Substance: PANITUMUMAB
     Dosage: 330 MG, Q2WK
     Route: 041
     Dates: start: 20161202, end: 20161202
  6. 5-FU [Suspect]
     Active Substance: FLUOROURACIL
     Dosage: 2000 MG/M2, Q2WK
     Route: 041
     Dates: start: 20161202, end: 20170210
  7. OXALIPLATIN. [Suspect]
     Active Substance: OXALIPLATIN
     Dosage: 65 MG/M2, Q2WK
     Route: 041
     Dates: start: 20161202, end: 20170210
  8. CALCIUM LEVOFOLINATE [Suspect]
     Active Substance: LEVOLEUCOVORIN CALCIUM
     Dosage: 325 MG, Q2WK
     Route: 041
     Dates: start: 20161007, end: 20161028
  9. FUROSEMIDE. [Suspect]
     Active Substance: FUROSEMIDE
     Indication: OEDEMA PERIPHERAL
     Dosage: 20 MG, UNK
     Route: 048
     Dates: start: 20170324
  10. FUROSEMIDE. [Suspect]
     Active Substance: FUROSEMIDE
     Dosage: 30 MG, UNK
     Route: 048
     Dates: start: 20170528
  11. VONOPRAZAN FUMARATE [Concomitant]
     Active Substance: VONOPRAZAN FUMURATE
     Indication: GASTROOESOPHAGEAL REFLUX DISEASE
     Dosage: 20 MG, QD
     Route: 048
     Dates: start: 20160916
  12. ALENDRONATE [Concomitant]
     Active Substance: ALENDRONATE SODIUM
     Indication: OSTEOPOROSIS
     Dosage: 35 MG, QWK
     Route: 048
     Dates: start: 20170227
  13. 5-FU [Suspect]
     Active Substance: FLUOROURACIL
     Dosage: 200 MG/M2, Q2WK
     Route: 040
     Dates: start: 20161202, end: 20170210
  14. CALCIUM LEVOFOLINATE [Suspect]
     Active Substance: LEVOLEUCOVORIN CALCIUM
     Dosage: 325 MG, Q2WK
     Route: 041
     Dates: start: 20161202, end: 20170303
  15. CALCIUM LEVOFOLINATE [Suspect]
     Active Substance: LEVOLEUCOVORIN CALCIUM
     Dosage: 325 MG, Q2WK
     Route: 041
     Dates: start: 20170331, end: 20170428
  16. PANITUMUMAB [Suspect]
     Active Substance: PANITUMUMAB
     Indication: RECTAL CANCER
     Dosage: 330 MG, Q2WK
     Route: 041
     Dates: start: 20160916, end: 20160916
  17. PANITUMUMAB [Suspect]
     Active Substance: PANITUMUMAB
     Dosage: 330 MG, Q2WK
     Route: 041
     Dates: start: 20161007, end: 20161028
  18. 5-FU [Suspect]
     Active Substance: FLUOROURACIL
     Dosage: 1600 MG/M2, Q2WK
     Route: 041
     Dates: start: 20170303, end: 20170303
  19. OXALIPLATIN. [Suspect]
     Active Substance: OXALIPLATIN
     Dosage: 50 MG/M2, Q2WK
     Route: 041
     Dates: start: 20170331, end: 20170414
  20. FUROSEMIDE. [Suspect]
     Active Substance: FUROSEMIDE
     Dosage: 30 MG, UNK
     Route: 048
     Dates: start: 20170604
  21. POTASSIUM CHLORIDE. [Suspect]
     Active Substance: POTASSIUM CHLORIDE
     Indication: HYPOKALAEMIA
     Dosage: 600 MG, BID
     Route: 048
     Dates: start: 20170331
  22. 5-FU [Suspect]
     Active Substance: FLUOROURACIL
     Indication: RECTAL CANCER
     Dosage: 650 MG, Q2WK
     Route: 040
     Dates: start: 20160916, end: 20160916
  23. 5-FU [Suspect]
     Active Substance: FLUOROURACIL
     Dosage: 1600 MG/M2, Q2WK
     Route: 041
     Dates: start: 20170331, end: 20170428
  24. OXALIPLATIN. [Suspect]
     Active Substance: OXALIPLATIN
     Indication: RECTAL CANCER
     Dosage: 140 MG, Q2WK
     Route: 041
     Dates: start: 20160916, end: 20160916
  25. FUROSEMIDE. [Suspect]
     Active Substance: FUROSEMIDE
     Indication: OEDEMA PERIPHERAL
     Dosage: 10 MG, QD
     Route: 048
     Dates: start: 20170520
  26. FUROSEMIDE. [Suspect]
     Active Substance: FUROSEMIDE
     Dosage: 40 MG, UNK
     Route: 048
     Dates: start: 20170601
  27. OXALIPLATIN. [Suspect]
     Active Substance: OXALIPLATIN
     Dosage: 140 MG, Q2WK
     Route: 041
     Dates: start: 20161007, end: 20161028
  28. APIXABAN [Concomitant]
     Active Substance: APIXABAN
     Indication: ATRIAL FIBRILLATION
     Dosage: 5 MG, BID
     Route: 048
     Dates: start: 20161007
  29. CALONAL [Concomitant]
     Active Substance: ACETAMINOPHEN
     Indication: BACK PAIN
     Dosage: 400 MG, UNK
     Route: 048
     Dates: start: 20170331
  30. PANITUMUMAB [Suspect]
     Active Substance: PANITUMUMAB
     Dosage: 200 MG, Q2WK
     Route: 041
     Dates: start: 20170331, end: 20170428
  31. 5-FU [Suspect]
     Active Substance: FLUOROURACIL
     Dosage: 4100 MG, Q2WK
     Route: 041
     Dates: start: 20160916, end: 20160916
  32. OXALIPLATIN. [Suspect]
     Active Substance: OXALIPLATIN
     Dosage: 50 MG/M2, Q2WK
     Route: 041
     Dates: start: 20170303, end: 20170303
  33. ELIQUIS [Concomitant]
     Active Substance: APIXABAN
     Indication: ATRIAL FIBRILLATION
     Dosage: 5 MG, BID
     Route: 048
     Dates: start: 20161007
  34. 5-FU [Suspect]
     Active Substance: FLUOROURACIL
     Dosage: 650 MG, Q2WK
     Route: 040
     Dates: start: 20161007, end: 20161028
  35. 5-FU [Suspect]
     Active Substance: FLUOROURACIL
     Dosage: 4100 MG, Q2WK
     Route: 041
     Dates: start: 20161007, end: 20161028
  36. SLOW-K [Suspect]
     Active Substance: POTASSIUM CHLORIDE
     Indication: HYPOKALAEMIA
     Dosage: 600 MG, BID
     Route: 048
     Dates: start: 20170331
  37. PARACETAMOL [Concomitant]
     Active Substance: ACETAMINOPHEN
     Indication: BACK PAIN
     Dosage: 400 MG, UNK
     Route: 048
     Dates: start: 20170331
  38. BIO-THREE [Concomitant]
     Active Substance: HERBALS
     Indication: DIARRHOEA
     Dosage: 2 DF, TID
     Route: 048
     Dates: start: 20140728

REACTIONS (21)
  - Hypokalaemia [Recovered/Resolved]
  - Paronychia [Not Recovered/Not Resolved]
  - Peripheral sensory neuropathy [Not Recovered/Not Resolved]
  - Cardiac failure [Recovering/Resolving]
  - Spinal compression fracture [Not Recovered/Not Resolved]
  - Aspartate aminotransferase increased [Recovered/Resolved]
  - Hypomagnesaemia [Recovered/Resolved]
  - Dry skin [Not Recovered/Not Resolved]
  - Decreased appetite [Recovered/Resolved]
  - Prothrombin time prolonged [Recovered/Resolved]
  - Diarrhoea [Recovered/Resolved]
  - Dermatitis acneiform [Not Recovered/Not Resolved]
  - Fatigue [Recovered/Resolved]
  - Facial bones fracture [Not Recovered/Not Resolved]
  - Anaemia [Not Recovered/Not Resolved]
  - White blood cell count decreased [Recovered/Resolved]
  - Fall [Recovered/Resolved]
  - Neutrophil count decreased [Recovered/Resolved]
  - Alanine aminotransferase increased [Recovered/Resolved]
  - Dysgeusia [Not Recovered/Not Resolved]
  - Stomatitis [Recovered/Resolved]

NARRATIVE: CASE EVENT DATE: 20161216
